FAERS Safety Report 26087072 (Version 1)
Quarter: 2025Q4

REPORT INFORMATION
  Report Type: Spontaneous
  Country: EU (occurrence: EU)
  Receive Date: 20251125
  Receipt Date: 20251125
  Transmission Date: 20260117
  Serious: Yes (Other)
  Sender: DAIICHI
  Company Number: EU-DSJP-DS-2025-178137-IT

PATIENT
  Age: 69 Year
  Sex: Female

DRUGS (2)
  1. TRASTUZUMAB DERUXTECAN [Suspect]
     Active Substance: TRASTUZUMAB DERUXTECAN
     Indication: HER2 mutant non-small cell lung cancer
     Dosage: 5.4 MG/KG
     Route: 065
  2. TRASTUZUMAB DERUXTECAN [Suspect]
     Active Substance: TRASTUZUMAB DERUXTECAN
     Dosage: 4.4 MG/KG
     Route: 065

REACTIONS (2)
  - Neurotoxicity [Unknown]
  - Alopecia [Unknown]
